FAERS Safety Report 13387712 (Version 1)
Quarter: 2017Q1

REPORT INFORMATION
  Report Type: Spontaneous
  Country: US (occurrence: US)
  Receive Date: 20170330
  Receipt Date: 20170330
  Transmission Date: 20170429
  Serious: Yes (Hospitalization)
  Sender: FDA-Public Use
  Company Number: US-HORIZON-KRY-0020-2017

PATIENT
  Age: 62 Year
  Sex: Male

DRUGS (1)
  1. KRYSTEXXA [Suspect]
     Active Substance: PEGLOTICASE
     Indication: GOUT
     Dosage: 8 MG ONCE
     Route: 042
     Dates: start: 20170302, end: 20170302

REACTIONS (5)
  - Peripheral swelling [Recovering/Resolving]
  - Spinal pain [Recovering/Resolving]
  - Muscular weakness [Recovering/Resolving]
  - Weight increased [Recovering/Resolving]
  - Arthralgia [Recovering/Resolving]

NARRATIVE: CASE EVENT DATE: 20170305
